FAERS Safety Report 25679261 (Version 1)
Quarter: 2025Q3

REPORT INFORMATION
  Report Type: Report from Study
  Country: US (occurrence: US)
  Receive Date: 20250814
  Receipt Date: 20250814
  Transmission Date: 20251021
  Serious: No
  Sender: SUNOVION
  Company Number: US-SUMITOMO PHARMA SWITZERLAND GMBH-2024SPA001805

PATIENT
  Age: 85 Year
  Sex: Male

DRUGS (2)
  1. ORGOVYX [Interacting]
     Active Substance: RELUGOLIX
     Indication: Prostate cancer
     Route: 048
     Dates: start: 20240808, end: 20240808
  2. ORGOVYX [Interacting]
     Active Substance: RELUGOLIX
     Dosage: 120 MG, QD
     Route: 048
     Dates: start: 20240809

REACTIONS (9)
  - Osteoporosis [Unknown]
  - Adverse drug reaction [Unknown]
  - Cortisol increased [Unknown]
  - Balance disorder [Unknown]
  - Injection site discomfort [Unknown]
  - Drug interaction [Unknown]
  - Diarrhoea [Unknown]
  - Myalgia [Unknown]
  - Arthralgia [Unknown]
